FAERS Safety Report 6861344-7 (Version None)
Quarter: 2010Q3

REPORT INFORMATION
  Report Type: 
  Country: None (occurrence: None)
  Receive Date: 20100720
  Receipt Date: 20100714
  Transmission Date: 20110219
  Serious: Yes (Hospitalization)
  Sender: FDA-Public Use
  Company Number: US-GILEAD-2010-0030449

PATIENT
  Sex: Male
  Weight: 123.49 kg

DRUGS (12)
  1. LETAIRIS [Suspect]
     Indication: PULMONARY ARTERIAL HYPERTENSION
     Route: 048
     Dates: start: 20100415
  2. WARFARIN SODIUM [Concomitant]
  3. LASIX [Concomitant]
  4. AVAPRO [Concomitant]
  5. DIGOXIN [Concomitant]
  6. METOPROLOL [Concomitant]
  7. PLAVIX [Concomitant]
  8. HUMALOG [Concomitant]
  9. COQ10 [Concomitant]
  10. FOLIC ACID [Concomitant]
  11. SULAR [Concomitant]
  12. ADULT ASPIRIN [Concomitant]

REACTIONS (2)
  - CARDIAC FAILURE CONGESTIVE [None]
  - UNEVALUABLE EVENT [None]
